FAERS Safety Report 8412028-5 (Version None)
Quarter: 2012Q2

REPORT INFORMATION
  Report Type: 
  Country: None (occurrence: None)
  Receive Date: 20120605
  Receipt Date: 20120517
  Transmission Date: 20120825
  Serious: No
  Sender: FDA-Public Use
  Company Number: US-AMGEN-USASP2012031273

PATIENT
  Age: 63 Year
  Sex: Male

DRUGS (1)
  1. ENBREL [Suspect]
     Indication: ANKYLOSING SPONDYLITIS
     Dosage: 50 MG, QWK
     Dates: start: 20120201

REACTIONS (7)
  - MUSCULOSKELETAL STIFFNESS [None]
  - DISORIENTATION [None]
  - INSOMNIA [None]
  - LYME DISEASE [None]
  - TREMOR [None]
  - RESTLESSNESS [None]
  - DISTURBANCE IN ATTENTION [None]
